FAERS Safety Report 8272228-4 (Version None)
Quarter: 2012Q1

REPORT INFORMATION
  Report Type: 
  Country: None (occurrence: None)
  Receive Date: 20120312
  Receipt Date: 20120110
  Transmission Date: 20120608
  Serious: No
  Sender: FDA-Public Use
  Company Number: 2012SP001804

PATIENT
  Age: 42 Year
  Sex: Female

DRUGS (2)
  1. SAPHRIS [Suspect]
     Indication: DEPRESSION
     Dosage: 10 MG;QD;SL
     Route: 060
     Dates: start: 20111101
  2. SAPHRIS [Suspect]
     Indication: ANXIETY
     Dosage: 10 MG;QD;SL
     Route: 060
     Dates: start: 20111101

REACTIONS (3)
  - FATIGUE [None]
  - HYPERSOMNIA [None]
  - INAPPROPRIATE SCHEDULE OF DRUG ADMINISTRATION [None]
